APPROVED DRUG PRODUCT: IRESSA
Active Ingredient: GEFITINIB
Strength: 250MG
Dosage Form/Route: TABLET;ORAL
Application: N206995 | Product #001 | TE Code: AB
Applicant: ASTRAZENECA PHARMACEUTICALS LP
Approved: Jul 13, 2015 | RLD: Yes | RS: Yes | Type: RX